FAERS Safety Report 14068970 (Version 7)
Quarter: 2018Q2

REPORT INFORMATION
  Report Type: Spontaneous
  Country: CA (occurrence: CA)
  Receive Date: 20171010
  Receipt Date: 20180530
  Transmission Date: 20180711
  Serious: Yes (Other)
  Sender: FDA-Public Use
  Company Number: CA-CELLTRION INC.-2017CA013585

PATIENT

DRUGS (3)
  1. INFLECTRA [Suspect]
     Active Substance: INFLIXIMAB-DYYB
     Indication: ANKYLOSING SPONDYLITIS
     Dosage: 425 MG, CYCLIC, EVERY 0, 2, 6 WEEKS, THEN EVERY 8 WEEKS
     Route: 042
     Dates: start: 20170703, end: 2017
  2. INFLECTRA [Suspect]
     Active Substance: INFLIXIMAB-DYYB
     Dosage: 425 MG, CYCLIC
     Route: 042
     Dates: start: 20171011
  3. INFLECTRA [Suspect]
     Active Substance: INFLIXIMAB-DYYB
     Dosage: 425 MG, CYCLIC
     Route: 042
     Dates: start: 20180326

REACTIONS (11)
  - Rhinorrhoea [Recovered/Resolved]
  - Renal colic [Unknown]
  - Blood pressure fluctuation [Unknown]
  - Influenza [Not Recovered/Not Resolved]
  - Productive cough [Recovered/Resolved]
  - Calculus bladder [Unknown]
  - Blood urine present [Recovered/Resolved]
  - Blood pressure increased [Unknown]
  - Bladder cancer [Unknown]
  - Bronchitis [Unknown]
  - Hot flush [Not Recovered/Not Resolved]

NARRATIVE: CASE EVENT DATE: 2017
